FAERS Safety Report 18064073 (Version 8)
Quarter: 2020Q4

REPORT INFORMATION
  Report Type: Spontaneous
  Country: CA (occurrence: CA)
  Receive Date: 20200724
  Receipt Date: 20201228
  Transmission Date: 20210113
  Serious: Yes (Hospitalization, Other)
  Sender: FDA-Public Use
  Company Number: CA-CELLTRION INC.-2019CA028568

PATIENT

DRUGS (12)
  1. INFLECTRA [Suspect]
     Active Substance: INFLIXIMAB-DYYB
     Dosage: 5 MG/KG, AT 0, 2, 6 WEEKS, THEN EVERY 8 WEEKS
     Route: 042
     Dates: start: 20200901
  2. METHYLPREDNISOLONE. [Concomitant]
     Active Substance: METHYLPREDNISOLONE
     Indication: PREMEDICATION
     Dosage: 60 MG, UNK
     Route: 042
  3. INFLECTRA [Suspect]
     Active Substance: INFLIXIMAB-DYYB
     Dosage: 5 MG/KG, AT 0, 2, 6 WEEKS, THEN EVERY 8 WEEKS
     Route: 042
     Dates: start: 20200409
  4. PREDNISONE. [Concomitant]
     Active Substance: PREDNISONE
     Dosage: 40 MG FOR 2 WEEKS THEN TAPER 5 MG WEEKLY UNTIL FINISHED; CURRENTLY ON 20MG STARTED IN JUL2019
     Dates: start: 201907
  5. INFLECTRA [Suspect]
     Active Substance: INFLIXIMAB-DYYB
     Dosage: 5 MG/KG, AT 0, 2, 6 WEEKS, THEN EVERY 8 WEEKS
     Route: 042
     Dates: start: 20200515
  6. ACETAMINOPHEN. [Concomitant]
     Active Substance: ACETAMINOPHEN
     Indication: PREMEDICATION
     Dosage: 650 MG, UNK
     Route: 048
  7. INFLECTRA [Suspect]
     Active Substance: INFLIXIMAB-DYYB
     Indication: CROHN^S DISEASE
     Dosage: 5 MG/KG, AT 0, 2, 6 WEEKS, THEN EVERY 8 WEEKS
     Route: 042
     Dates: start: 20200327
  8. RABEPRAZOLE [Concomitant]
     Active Substance: RABEPRAZOLE
     Dosage: 20 MG, DAILY
     Route: 048
  9. ESCITALOPRAM [Concomitant]
     Active Substance: ESCITALOPRAM OXALATE
     Dosage: 20 MG, 1X/DAY
     Route: 065
  10. INFLECTRA [Suspect]
     Active Substance: INFLIXIMAB-DYYB
     Dosage: 5 MG/KG, AT 0, 2, 6 WEEKS, THEN EVERY 8 WEEKS
     Route: 042
     Dates: start: 20201027
  11. CIPRALEX [Concomitant]
     Active Substance: ESCITALOPRAM OXALATE
     Dosage: 20 MG, DAILY
     Route: 048
  12. DIPHENHYDRAMINE. [Concomitant]
     Active Substance: DIPHENHYDRAMINE
     Indication: PREMEDICATION
     Dosage: 50 MG, UNK
     Route: 048

REACTIONS (27)
  - Infusion site pain [Unknown]
  - Infusion site swelling [Unknown]
  - Mouth ulceration [Unknown]
  - Constipation [Unknown]
  - Diarrhoea [Unknown]
  - Off label use [Unknown]
  - Haemolysis [Unknown]
  - Off label use [Unknown]
  - Abortion spontaneous [Unknown]
  - Maternal exposure during pregnancy [Unknown]
  - Condition aggravated [Recovering/Resolving]
  - Arthralgia [Unknown]
  - Weight decreased [Unknown]
  - Vomiting [Unknown]
  - Dermal cyst [Not Recovered/Not Resolved]
  - Blood pressure fluctuation [Unknown]
  - Intentional product use issue [Unknown]
  - Thinking abnormal [Unknown]
  - Blood pressure decreased [Unknown]
  - Inappropriate schedule of product administration [Unknown]
  - Faeces hard [Unknown]
  - Bartholin^s cyst [Recovered/Resolved]
  - Increased appetite [Unknown]
  - Weight increased [Unknown]
  - Urinary tract infection [Unknown]
  - Kidney infection [Unknown]
  - Abdominal distension [Recovered/Resolved]

NARRATIVE: CASE EVENT DATE: 2020
